FAERS Safety Report 9287594 (Version 1)
Quarter: 2013Q2

REPORT INFORMATION
  Report Type: Spontaneous
  Country: US (occurrence: US)
  Receive Date: 20130514
  Receipt Date: 20130514
  Transmission Date: 20140414
  Serious: Yes (Hospitalization, Other)
  Sender: FDA-Public Use
  Company Number: US-PFIZER INC-001-0982-M0200006

PATIENT
  Age: 6 Year
  Sex: Female

DRUGS (2)
  1. CEREBYX [Suspect]
     Indication: CONVULSION
     Dosage: 750MG, SINGLE
     Route: 042
     Dates: start: 20020211
  2. LAMOTRIGINE [Concomitant]
     Indication: CONVULSION
     Dosage: 50 MG EVERY MORNING, 25 MG EVERY EVENING
     Route: 048

REACTIONS (9)
  - Accidental overdose [Recovered/Resolved]
  - Product label confusion [Recovered/Resolved]
  - Toxicity to various agents [Recovered/Resolved]
  - Convulsion [Unknown]
  - Pruritus [Unknown]
  - Ataxia [Unknown]
  - Nausea [Unknown]
  - Vomiting [Unknown]
  - Lethargy [Unknown]
